FAERS Safety Report 12835810 (Version 2)
Quarter: 2016Q4

REPORT INFORMATION
  Report Type: Report from Study
  Country: None (occurrence: KR)
  Receive Date: 20161011
  Receipt Date: 20161214
  Transmission Date: 20170207
  Serious: Yes (Hospitalization)
  Sender: FDA-Public Use
  Company Number: KR-ABBVIE-16P-090-1749067-00

PATIENT
  Age: 69 Year
  Sex: Male
  Weight: 74 kg

DRUGS (32)
  1. MULEX [Concomitant]
     Indication: ANKYLOSING SPONDYLITIS
     Route: 048
     Dates: start: 20151116, end: 20160626
  2. PYRAZINAMIDE. [Concomitant]
     Active Substance: PYRAZINAMIDE
     Indication: TUBERCULOSIS
     Route: 048
     Dates: start: 20160914, end: 20160923
  3. HYTRIN [Concomitant]
     Active Substance: TERAZOSIN HYDROCHLORIDE
     Indication: BENIGN PROSTATIC HYPERPLASIA
     Route: 048
     Dates: start: 20160914
  4. CONCOR [Concomitant]
     Active Substance: BISOPROLOL FUMARATE
     Indication: HYPERTENSION
     Route: 048
     Dates: start: 20161004
  5. ALBIS [Concomitant]
     Active Substance: BISMUTH SUBCITRATE\RANITIDINE HYDROCHLORIDE\SUCRALFATE
     Indication: GASTRIC DISORDER
     Route: 048
     Dates: start: 20151118
  6. ZOPYRIN [Concomitant]
     Indication: ANKYLOSING SPONDYLITIS
     Route: 048
     Dates: start: 20151119, end: 20160529
  7. PYRIDOXINE HCL [Concomitant]
     Active Substance: PYRIDOXINE HYDROCHLORIDE
     Indication: TUBERCULOSIS
     Route: 048
     Dates: start: 20160914, end: 20160923
  8. PYRIDOXINE HCL [Concomitant]
     Active Substance: PYRIDOXINE HYDROCHLORIDE
     Indication: PROPHYLAXIS
  9. RIFODEX [Concomitant]
     Indication: PROPHYLAXIS
     Route: 048
     Dates: start: 20160914, end: 20160923
  10. RIFODEX [Concomitant]
     Indication: PROPHYLAXIS
  11. PROSCAR [Concomitant]
     Active Substance: FINASTERIDE
     Indication: BENIGN PROSTATIC HYPERPLASIA
     Route: 048
     Dates: start: 20160914
  12. CELEBREX [Concomitant]
     Active Substance: CELECOXIB
     Indication: ANKYLOSING SPONDYLITIS
     Route: 048
     Dates: start: 20160927, end: 20160928
  13. PYRAZINAMIDE. [Concomitant]
     Active Substance: PYRAZINAMIDE
     Indication: PROPHYLAXIS
  14. YUHANZID [Concomitant]
     Active Substance: ISONIAZID
     Indication: PROPHYLAXIS
     Route: 048
     Dates: start: 20160914, end: 20160923
  15. TAMBUTOL [Concomitant]
     Indication: TUBERCULOSIS
     Route: 048
     Dates: start: 20160914, end: 20160923
  16. TALION [Concomitant]
     Active Substance: BEPOTASTINE
     Indication: DERMATITIS
     Route: 048
     Dates: start: 20160929
  17. FINASTAR [Concomitant]
     Indication: BENIGN PROSTATIC HYPERPLASIA
     Route: 048
  18. XYZAL [Concomitant]
     Active Substance: LEVOCETIRIZINE DIHYDROCHLORIDE
     Indication: RHINITIS
     Route: 048
     Dates: start: 20160822
  19. DICAMAX-D [Concomitant]
     Indication: VITAMIN SUPPLEMENTATION
     Route: 048
     Dates: start: 20160530
  20. WINUF PERI [Concomitant]
     Indication: SUPPLEMENTATION THERAPY
     Route: 042
     Dates: start: 20160912, end: 20160913
  21. TAMBUTOL [Concomitant]
     Indication: PROPHYLAXIS
  22. NORVASC [Concomitant]
     Active Substance: AMLODIPINE BESYLATE
     Indication: HYPERTENSION
     Route: 048
     Dates: start: 20161003
  23. HUMIRA [Suspect]
     Active Substance: ADALIMUMAB
     Indication: ANKYLOSING SPONDYLITIS
     Route: 058
     Dates: start: 20160530, end: 20160822
  24. AMLODIPINE [Concomitant]
     Active Substance: AMLODIPINE BESYLATE
     Indication: HYPERTENSION
     Route: 048
  25. LOSARPIN PLUS [Concomitant]
     Indication: HYPERTENSION
     Route: 048
  26. SOLONDO [Concomitant]
     Active Substance: PREDNISOLONE
     Indication: ANKYLOSING SPONDYLITIS
     Route: 048
     Dates: start: 20151116, end: 20160626
  27. PENIRAMIN [Concomitant]
     Indication: DERMATITIS
     Route: 042
     Dates: start: 20160914, end: 20160917
  28. NEOTRIN [Concomitant]
     Indication: BENIGN PROSTATIC HYPERPLASIA
     Route: 048
  29. ALBIS [Concomitant]
     Active Substance: BISMUTH SUBCITRATE\RANITIDINE HYDROCHLORIDE\SUCRALFATE
     Indication: GASTROINTESTINAL DISORDER
  30. SITRACAL F [Concomitant]
     Indication: MINERAL SUPPLEMENTATION
     Route: 048
     Dates: start: 20160215, end: 20160529
  31. ALLELOCK [Concomitant]
     Active Substance: OLOPATADINE HYDROCHLORIDE
     Indication: DERMATITIS
     Route: 048
     Dates: start: 20160914, end: 20160914
  32. YUHANZID [Concomitant]
     Active Substance: ISONIAZID
     Indication: PROPHYLAXIS

REACTIONS (1)
  - Lymphadenopathy [Recovered/Resolved]

NARRATIVE: CASE EVENT DATE: 20160902
